FAERS Safety Report 15255562 (Version 1)
Quarter: 2018Q3

REPORT INFORMATION
  Report Type: Spontaneous
  Country: US (occurrence: US)
  Receive Date: 20180808
  Receipt Date: 20180808
  Transmission Date: 20181010
  Serious: Yes (Death, Hospitalization)
  Sender: FDA-Public Use
  Company Number: US-TEVA-2018-US-937963

PATIENT
  Age: 28 Year
  Sex: Female

DRUGS (5)
  1. ASPIRIN. [Concomitant]
     Active Substance: ASPIRIN
     Route: 048
  2. PROPRANOLOL [Suspect]
     Active Substance: PROPRANOLOL HYDROCHLORIDE
     Route: 048
  3. ACETAMINOPHEN. [Concomitant]
     Active Substance: ACETAMINOPHEN
     Route: 048
  4. IBUPROFEN. [Concomitant]
     Active Substance: IBUPROFEN
     Route: 048
  5. ALCOHOL. [Concomitant]
     Active Substance: ALCOHOL
     Route: 048

REACTIONS (11)
  - Cardio-respiratory arrest [Fatal]
  - Acute respiratory failure [Fatal]
  - Shock [Recovered/Resolved]
  - Ischaemia [Fatal]
  - Coma [Fatal]
  - Brain injury [Fatal]
  - Toxicity to various agents [Fatal]
  - Cardiac arrest [Fatal]
  - Overdose [Fatal]
  - Brain death [Fatal]
  - Circulatory collapse [Fatal]
